FAERS Safety Report 8815196 (Version 2)
Quarter: 2012Q4

REPORT INFORMATION
  Report Type: Report from Study
  Country: DE (occurrence: DE)
  Receive Date: 20120928
  Receipt Date: 20121126
  Transmission Date: 20130627
  Serious: Yes (Hospitalization)
  Sender: FDA-Public Use
  Company Number: DE-BAXTER-2012BAX017735

PATIENT
  Age: 42 Year
  Sex: Female
  Weight: 52 kg

DRUGS (6)
  1. ENDOXAN 1G [Suspect]
     Indication: MALIGNANT BREAST NEOPLASM
     Route: 042
     Dates: start: 20120815
  2. ENDOXAN 1G [Suspect]
     Route: 042
     Dates: start: 20120905
  3. PERTUZUMAB [Suspect]
     Indication: MALIGNANT BREAST NEOPLASM
     Route: 042
  4. TRASTUZUMAB [Suspect]
     Indication: MALIGNANT BREAST NEOPLASM
     Route: 042
  5. DOXORUBICIN [Suspect]
     Indication: MALIGNANT BREAST NEOPLASM
     Route: 042
     Dates: start: 20120815
  6. DOXORUBICIN [Suspect]
     Route: 042
     Dates: start: 20120905

REACTIONS (3)
  - Pyrexia [Recovered/Resolved]
  - Cough [Unknown]
  - Painful respiration [Unknown]
